FAERS Safety Report 10861973 (Version 2)
Quarter: 2016Q1

REPORT INFORMATION
  Report Type: Spontaneous
  Country: FR (occurrence: FR)
  Receive Date: 20150224
  Receipt Date: 20160108
  Transmission Date: 20160525
  Serious: Yes (Disabling, Other)
  Sender: FDA-Public Use
  Company Number: FR-CELGENE-056-FK228-12063269

PATIENT

DRUGS (5)
  1. ROMIDEPSIN [Suspect]
     Active Substance: ROMIDEPSIN
     Indication: T-CELL LYMPHOMA
     Dosage: ESCALATING DOSES
     Route: 065
  2. CYCLOPHOSPHAMIDE. [Concomitant]
     Active Substance: CYCLOPHOSPHAMIDE
     Indication: T-CELL LYMPHOMA
     Route: 065
  3. VINCRISTINE [Concomitant]
     Active Substance: VINCRISTINE
     Indication: T-CELL LYMPHOMA
     Route: 065
  4. DOXORUBICINE [Concomitant]
     Active Substance: DOXORUBICIN
     Indication: T-CELL LYMPHOMA
     Route: 065
  5. PREDNISONE. [Concomitant]
     Active Substance: PREDNISONE
     Indication: T-CELL LYMPHOMA
     Route: 065

REACTIONS (50)
  - Neutropenia [Unknown]
  - Deep vein thrombosis [Unknown]
  - Acute myeloid leukaemia [Unknown]
  - Hypocalcaemia [Unknown]
  - Asthenia [Unknown]
  - Gamma-glutamyltransferase increased [Unknown]
  - Constipation [Unknown]
  - Pyrexia [Unknown]
  - Electrocardiogram QT prolonged [Unknown]
  - Malaise [Unknown]
  - Lymphopenia [Unknown]
  - Cardiac failure acute [Unknown]
  - General physical health deterioration [Unknown]
  - Anaemia [Unknown]
  - Hypophosphataemia [Unknown]
  - Myocardial infarction [Unknown]
  - Hypomagnesaemia [Unknown]
  - Fatigue [Unknown]
  - Blood alkaline phosphatase increased [Unknown]
  - Blood bilirubin increased [Unknown]
  - Haematotoxicity [Unknown]
  - Arrhythmia [Unknown]
  - Peripheral sensorimotor neuropathy [Unknown]
  - Weight decreased [Unknown]
  - Hyperglycaemia [Unknown]
  - Headache [Unknown]
  - Epistaxis [Unknown]
  - Hepatic enzyme increased [Unknown]
  - Acute pulmonary oedema [Unknown]
  - Vomiting [Unknown]
  - Syncope [Unknown]
  - Nausea [Unknown]
  - Diarrhoea [Unknown]
  - Cough [Unknown]
  - Acute coronary syndrome [Unknown]
  - Lung infection [Unknown]
  - Febrile neutropenia [Unknown]
  - Dyspepsia [Unknown]
  - Hypokalaemia [Unknown]
  - Decreased appetite [Unknown]
  - Mucosal inflammation [Unknown]
  - Hypoalbuminaemia [Unknown]
  - Thrombocytopenia [Unknown]
  - T-cell lymphoma [Unknown]
  - Hypernatraemia [Unknown]
  - Alanine aminotransferase increased [Unknown]
  - Paraesthesia [Unknown]
  - Dyspnoea [Unknown]
  - Oedema [Unknown]
  - Pruritus [Unknown]
